FAERS Safety Report 4304058-X (Version None)
Quarter: 2004Q1

REPORT INFORMATION
  Report Type: 
  Country: None (occurrence: None)
  Receive Date: 20040224
  Receipt Date: 20040217
  Transmission Date: 20041129
  Serious: Yes (Hospitalization)
  Sender: FDA-Public Use
  Company Number: 03P-062-0245595-00

PATIENT
  Sex: Female
  Weight: 68 kg

DRUGS (5)
  1. HUMIRA [Suspect]
     Indication: RHEUMATOID ARTHRITIS
     Dosage: 40 MG, SUBCUTANEOUS
     Route: 058
     Dates: start: 20030801, end: 20031201
  2. ISONIAZID [Suspect]
     Indication: RHEUMATOID ARTHRITIS
     Dates: start: 20030801, end: 20031201
  3. ACEMETHACINE (AN NSAR) [Concomitant]
  4. METHOTREXATE [Concomitant]
  5. LEFLUNOMIDE [Suspect]
     Indication: RHEUMATOID ARTHRITIS
     Dosage: 20 MG
     Dates: start: 20030501, end: 20031201

REACTIONS (9)
  - ARTHRALGIA [None]
  - DYSPNOEA EXERTIONAL [None]
  - ERYTHROPOIESIS ABNORMAL [None]
  - HAEMOGLOBIN DECREASED [None]
  - MUSCULOSKELETAL STIFFNESS [None]
  - MYELOID MATURATION ARREST [None]
  - OEDEMA PERIPHERAL [None]
  - PAIN IN EXTREMITY [None]
  - RETICULOCYTE COUNT DECREASED [None]
